FAERS Safety Report 12076693 (Version 1)
Quarter: 2016Q1

REPORT INFORMATION
  Report Type: Spontaneous
  Country: US (occurrence: US)
  Receive Date: 20160215
  Receipt Date: 20160215
  Transmission Date: 20160526
  Serious: No
  Sender: FDA-Public Use
  Company Number: US-BAYER-2016-028809

PATIENT
  Age: 58 Year
  Sex: Female
  Weight: 119.27 kg

DRUGS (13)
  1. HYDROCODONE [Concomitant]
     Active Substance: HYDROCODONE
  2. POTASSIUM [Concomitant]
     Active Substance: POTASSIUM
  3. NAPROXEN. [Concomitant]
     Active Substance: NAPROXEN
  4. TEMAZEPAM. [Concomitant]
     Active Substance: TEMAZEPAM
  5. NEXIUM [Concomitant]
     Active Substance: ESOMEPRAZOLE MAGNESIUM
  6. TRAMADOL. [Concomitant]
     Active Substance: TRAMADOL
  7. ALEVE [Suspect]
     Active Substance: NAPROXEN SODIUM
     Indication: MYALGIA
     Dosage: 1 DF, PRN
     Route: 048
     Dates: start: 2014, end: 2015
  8. ALEVE [Suspect]
     Active Substance: NAPROXEN SODIUM
     Indication: MYALGIA
     Dosage: 1 DF, QD
     Route: 048
     Dates: start: 2015
  9. LASIX [Concomitant]
     Active Substance: FUROSEMIDE
  10. METFORMIN [Concomitant]
     Active Substance: METFORMIN HYDROCHLORIDE
  11. GABAPENTIN. [Concomitant]
     Active Substance: GABAPENTIN
  12. DICLOFENAC [Concomitant]
     Active Substance: DICLOFENAC
  13. VITAMIN D2 [Concomitant]
     Active Substance: ERGOCALCIFEROL

REACTIONS (1)
  - Product use issue [None]

NARRATIVE: CASE EVENT DATE: 2015
